FAERS Safety Report 6804914-4 (Version None)
Quarter: 2010Q2

REPORT INFORMATION
  Report Type: 
  Country: None (occurrence: None)
  Receive Date: 20100628
  Receipt Date: 20070706
  Transmission Date: 20101027
  Serious: No
  Sender: FDA-Public Use
  Company Number: US-PFIZER INC-2007056105

PATIENT
  Sex: Male
  Weight: 77.272 kg

DRUGS (4)
  1. XALATAN [Suspect]
     Indication: GLAUCOMA
     Dates: start: 20060101
  2. LISINOPRIL [Concomitant]
     Indication: BLOOD PRESSURE
  3. LOVASTATIN [Concomitant]
  4. OMEPRAZOLE [Concomitant]

REACTIONS (1)
  - EYE IRRITATION [None]
